FAERS Safety Report 4901882-7 (Version None)
Quarter: 2006Q1

REPORT INFORMATION
  Report Type: 
  Country: None (occurrence: None)
  Receive Date: 20060206
  Receipt Date: 20060126
  Transmission Date: 20060701
  Serious: Yes (Hospitalization)
  Sender: FDA-Public Use
  Company Number: US-ABBOTT-06P-163-0323388-00

PATIENT
  Sex: Male
  Weight: 63.56 kg

DRUGS (14)
  1. HUMIRA [Suspect]
     Indication: RHEUMATOID ARTHRITIS
     Route: 058
     Dates: start: 20050101
  2. ALLERGY SHOTS [Concomitant]
     Indication: HYPERSENSITIVITY
     Route: 030
  3. SULFASALAZINE [Concomitant]
     Indication: RHEUMATOID ARTHRITIS
     Route: 048
  4. HYDROXYCHLOROQUINE PHOSPHATE [Concomitant]
     Indication: RHEUMATOID ARTHRITIS
     Route: 048
  5. IBUPROFEN [Concomitant]
     Indication: RHEUMATOID ARTHRITIS
     Route: 048
  6. LESCOL XL [Concomitant]
     Indication: BLOOD CHOLESTEROL
     Route: 048
  7. CLOPIDOGREL BISULFATE [Concomitant]
     Indication: ANTICOAGULANT THERAPY
     Route: 048
  8. DILTIAZEM HYDROCHLORIDE [Concomitant]
     Indication: BLOOD PRESSURE
     Route: 048
  9. ACETYLSALICYLIC ACID SRT [Concomitant]
     Indication: ANTICOAGULANT THERAPY
     Route: 048
  10. MULTIVITAMIN [Concomitant]
     Indication: DRUG USE FOR UNKNOWN INDICATION
     Route: 048
  11. SERETIDE MITE [Concomitant]
     Indication: RESPIRATORY DISORDER
     Route: 055
  12. MOMETASONE FUROATE [Concomitant]
     Indication: RESPIRATORY DISORDER
     Dosage: NOT REPORTED
  13. SALBUTAMOL [Concomitant]
     Indication: RESPIRATORY DISORDER
     Route: 055
  14. FEXOFENADINE HYDROCHLORIDE [Concomitant]
     Indication: HYPERSENSITIVITY
     Route: 048

REACTIONS (2)
  - CORONARY ARTERY OCCLUSION [None]
  - RENAL ARTERY OCCLUSION [None]
